FAERS Safety Report 6249669-X (Version None)
Quarter: 2009Q2

REPORT INFORMATION
  Report Type: 
  Country: None (occurrence: None)
  Receive Date: 20090624
  Receipt Date: 20090611
  Transmission Date: 20091009
  Serious: Yes (Death)
  Sender: FDA-Public Use
  Company Number: A-CH2009-24289

PATIENT
  Age: 70 Year
  Sex: Female

DRUGS (5)
  1. TRACLEER [Suspect]
     Indication: PULMONARY ARTERIAL HYPERTENSION
     Dosage: 125 MG, BID, ORAL ; 62.5 MG, BID, ORAL
     Route: 048
     Dates: start: 20081015, end: 20081115
  2. TRACLEER [Suspect]
     Indication: PULMONARY ARTERIAL HYPERTENSION
     Dosage: 125 MG, BID, ORAL ; 62.5 MG, BID, ORAL
     Route: 048
     Dates: start: 20081116, end: 20090302
  3. ALDACTONE [Concomitant]
  4. ANPLAG (SARPOGRELATE HYDROCHLORIDE) [Concomitant]
  5. HERBEN (DILTIAZEM HYDROCHLORIDE) [Concomitant]

REACTIONS (4)
  - CARDIAC FAILURE [None]
  - CONDITION AGGRAVATED [None]
  - MULTI-ORGAN FAILURE [None]
  - RESPIRATORY ACIDOSIS [None]
